FAERS Safety Report 9403198 (Version 1)
Quarter: 2013Q3

REPORT INFORMATION
  Report Type: Spontaneous
  Country: US (occurrence: US)
  Receive Date: 20130716
  Receipt Date: 20130716
  Transmission Date: 20140515
  Serious: Yes (Life-Threatening, Other)
  Sender: FDA-Public Use
  Company Number: US-ELI_LILLY_AND_COMPANY-US201307003935

PATIENT
  Age: 85 Year
  Sex: Female

DRUGS (4)
  1. HUMALOG 25% LISPRO, 75% NPL [Suspect]
     Indication: TYPE 1 DIABETES MELLITUS
     Dosage: UNK, OTHER
  2. PREDNISONE [Concomitant]
  3. MUCINEX [Concomitant]
  4. CORICIDIN [Concomitant]

REACTIONS (5)
  - Respiratory failure [Unknown]
  - Lung disorder [Unknown]
  - Diaphragmatic disorder [Unknown]
  - Pulmonary congestion [Unknown]
  - Nausea [Unknown]
